FAERS Safety Report 7567993-5 (Version None)
Quarter: 2011Q2

REPORT INFORMATION
  Report Type: 
  Country: None (occurrence: None)
  Receive Date: 20110616
  Receipt Date: 20110609
  Transmission Date: 20111010
  Serious: Yes (Life-Threatening, Hospitalization)
  Sender: FDA-Public Use
  Company Number: GER/UKI/11/0018679

PATIENT
  Age: 61 Year
  Sex: Male

DRUGS (2)
  1. AMITRIPTYLINE HCL [Concomitant]
  2. FLUOXETINE [Suspect]
     Indication: DEPRESSION
     Dosage: 20 MG, ORAL
     Route: 048
     Dates: start: 20110411, end: 20110414

REACTIONS (6)
  - APPARENT LIFE THREATENING EVENT [None]
  - HEART INJURY [None]
  - INTENTIONAL SELF-INJURY [None]
  - MENTAL IMPAIRMENT [None]
  - SUICIDE ATTEMPT [None]
  - LIVER INJURY [None]
